FAERS Safety Report 5624894-7 (Version None)
Quarter: 2008Q1

REPORT INFORMATION
  Report Type: 
  Country: None (occurrence: None)
  Receive Date: 20080213
  Receipt Date: 20080204
  Transmission Date: 20080703
  Serious: Yes (Other)
  Sender: FDA-Public Use
  Company Number: US-PFIZER INC-2008011368

PATIENT
  Sex: Male
  Weight: 112.27 kg

DRUGS (7)
  1. LIPITOR [Suspect]
     Indication: HYPERLIPIDAEMIA
     Route: 048
  2. TOPROL [Concomitant]
  3. ACETYLSALICYLIC ACID SRT [Concomitant]
  4. AVODART [Concomitant]
  5. FISH OIL [Concomitant]
  6. FLUOXETINE [Concomitant]
  7. CHONDROITIN/GLUCOSAMINE [Concomitant]

REACTIONS (3)
  - GLOSSODYNIA [None]
  - TONGUE DISCOLOURATION [None]
  - TONGUE DISORDER [None]
